FAERS Safety Report 7500444-5 (Version None)
Quarter: 2011Q2

REPORT INFORMATION
  Report Type: 
  Country: None (occurrence: None)
  Receive Date: 20110524
  Receipt Date: 20110323
  Transmission Date: 20111010
  Serious: No
  Sender: FDA-Public Use
  Company Number: US-BRISTOL-MYERS SQUIBB COMPANY-15630718

PATIENT
  Age: 50 Year
  Sex: Female

DRUGS (1)
  1. ONGLYZA [Suspect]
     Dosage: 1 DF:2.5MG/1000MG  FORMULATION:ONGLYZA XR 2.5MG/1000MG

REACTIONS (2)
  - DIZZINESS [None]
  - PERIPHERAL COLDNESS [None]
